FAERS Safety Report 12776858 (Version 5)
Quarter: 2016Q4

REPORT INFORMATION
  Report Type: Spontaneous
  Country: US (occurrence: US)
  Receive Date: 20160923
  Receipt Date: 20161228
  Transmission Date: 20170207
  Serious: No
  Sender: FDA-Public Use
  Company Number: US-PFIZER INC-2016445172

PATIENT
  Age: 80 Year
  Sex: Female
  Weight: 90.72 kg

DRUGS (18)
  1. LEVOTHYROXINE. [Concomitant]
     Active Substance: LEVOTHYROXINE
     Dosage: 75 UG, DAILY
     Route: 048
  2. NITROSTAT [Concomitant]
     Active Substance: NITROGLYCERIN
     Dosage: UNK
     Route: 061
  3. VERAPAMIL [Concomitant]
     Active Substance: VERAPAMIL HYDROCHLORIDE
     Dosage: 240 MG, DAILY
     Route: 048
  4. OXYCODONE [Concomitant]
     Active Substance: OXYCODONE
     Dosage: UNK
  5. LASIX [Concomitant]
     Active Substance: FUROSEMIDE
     Indication: OEDEMA
     Dosage: 20 MG, AS NEEDED
     Route: 048
  6. ACETAMINOPHEN. [Concomitant]
     Active Substance: ACETAMINOPHEN
     Dosage: UNK UNK, AS NEEDED
  7. INLYTA [Suspect]
     Active Substance: AXITINIB
     Indication: RENAL CELL CARCINOMA STAGE IV
     Dosage: 3 DF, 3X/DAY (THREE IN THE MORNING AND THREE AT AFTERNOON AND THREE LATE IN THE NIGHT)
  8. INLYTA [Suspect]
     Active Substance: AXITINIB
     Dosage: UNK, 2X/DAY (2 MG AM AND 3 MG PM)
     Dates: start: 20141030
  9. BEELITH [Concomitant]
     Dosage: 1 DF, DAILY
     Route: 048
  10. INLYTA [Suspect]
     Active Substance: AXITINIB
     Dosage: 3 MG, 2X/DAY
     Route: 048
     Dates: start: 20141030, end: 20161208
  11. VITAMIN D3 [Concomitant]
     Active Substance: CHOLECALCIFEROL
     Dosage: 2000 IU, DAILY
     Route: 048
  12. DIFLUCAN [Concomitant]
     Active Substance: FLUCONAZOLE
     Indication: VULVOVAGINAL MYCOTIC INFECTION
     Dosage: 100 MG, AS NEEDED
     Route: 048
  13. ZOMETA [Concomitant]
     Active Substance: ZOLEDRONIC ACID
     Dosage: UNK, 1X/DAY (3 MG, 3.75 ML, 415 ML/HR)
     Route: 042
  14. VITAMIN D [Concomitant]
     Active Substance: CHOLECALCIFEROL
  15. OMEPRAZOLE. [Concomitant]
     Active Substance: OMEPRAZOLE
     Dosage: UNK
  16. INLYTA [Suspect]
     Active Substance: AXITINIB
     Dosage: 3 MG, 2X/DAY (Q12H)
     Route: 048
  17. NYSTATIN. [Concomitant]
     Active Substance: NYSTATIN
     Dosage: UNK, 3X/DAY (100,000 UNITS/G)
     Route: 061
  18. MORPHINE [Concomitant]
     Active Substance: MORPHINE
     Dosage: UNK

REACTIONS (19)
  - Intermittent claudication [Unknown]
  - Nausea [Recovered/Resolved]
  - Arthralgia [Unknown]
  - Pain [Unknown]
  - Gait disturbance [Unknown]
  - Haemangioma [Unknown]
  - Oedema peripheral [Unknown]
  - Tenderness [Unknown]
  - Disease progression [Unknown]
  - Product use issue [Unknown]
  - Hyperhidrosis [Unknown]
  - Fatigue [Unknown]
  - Activities of daily living impaired [Unknown]
  - Swelling [Unknown]
  - Movement disorder [Unknown]
  - Decreased appetite [Unknown]
  - Musculoskeletal pain [Unknown]
  - Alopecia [Not Recovered/Not Resolved]
  - Abdominal hernia [Unknown]
